FAERS Safety Report 7781130-3 (Version None)
Quarter: 2011Q3

REPORT INFORMATION
  Report Type: 
  Country: None (occurrence: None)
  Receive Date: 20110927
  Receipt Date: 20110922
  Transmission Date: 20111222
  Serious: Yes (Hospitalization)
  Sender: FDA-Public Use
  Company Number: PHHY2011CN76014

PATIENT
  Age: 61 Year
  Sex: Male
  Weight: 77 kg

DRUGS (6)
  1. INSULIN [Concomitant]
     Dosage: UNK UKN, UNK
  2. ZOLEDRONOC ACID [Suspect]
     Indication: OSTEOPOROSIS
     Dosage: 5 MG PER 100 ML
     Route: 042
     Dates: start: 20110721
  3. ASPART [Concomitant]
     Dosage: UNK UKN, UNK
  4. CALTRATE +D [Concomitant]
     Dosage: UNK UKN, UNK
  5. TRADITIONAL CHINESE MEDICINE [Concomitant]
     Dosage: UNK UKN, UNK
  6. ALPHA D3 [Concomitant]
     Dosage: UNK UKN, UNK

REACTIONS (6)
  - PYREXIA [None]
  - SCROTAL SWELLING [None]
  - PAIN [None]
  - DIABETES MELLITUS [None]
  - OROPHARYNGEAL PAIN [None]
  - RASH [None]
